FAERS Safety Report 9983796 (Version 2)
Quarter: 2014Q1

REPORT INFORMATION
  Report Type: Spontaneous
  Country: CO (occurrence: CO)
  Receive Date: 20140307
  Receipt Date: 20140317
  Transmission Date: 20141002
  Serious: Yes (Life-Threatening, Hospitalization)
  Sender: FDA-Public Use
  Company Number: CO-VIIV HEALTHCARE LIMITED-A1063925A

PATIENT
  Age: 36 Year
  Sex: Male
  Weight: 65 kg

DRUGS (2)
  1. KIVEXA [Suspect]
     Indication: ANTIRETROVIRAL THERAPY
     Route: 048
  2. EFAVIRENZ [Concomitant]

REACTIONS (5)
  - Myocardial infarction [Recovered/Resolved with Sequelae]
  - Ventricular tachycardia [Recovered/Resolved]
  - Acquired cardiac septal defect [Unknown]
  - Electrocardiogram ST segment abnormal [Unknown]
  - Ejection fraction decreased [Unknown]
